FAERS Safety Report 7771546-3 (Version None)
Quarter: 2011Q3

REPORT INFORMATION
  Report Type: 
  Country: None (occurrence: None)
  Receive Date: 20110922
  Receipt Date: 20100419
  Transmission Date: 20111222
  Serious: No
  Sender: FDA-Public Use
  Company Number: US-ASTRAZENECA-2009UW10341

PATIENT
  Age: 534 Month
  Sex: Male
  Weight: 85.7 kg

DRUGS (26)
  1. SEROQUEL [Suspect]
     Indication: BIPOLAR DISORDER
     Route: 048
     Dates: start: 19970101
  2. LEXAPRO [Concomitant]
     Dates: start: 20021015
  3. RISPERDAL [Concomitant]
  4. ZYPREXA [Concomitant]
     Dates: start: 20030910
  5. ALPRAZOLAM [Concomitant]
     Dates: start: 20020820
  6. CELEXA [Concomitant]
     Dates: start: 20030910
  7. PHRENILIN [Concomitant]
     Dosage: 50-325 TAB
     Dates: start: 19980430
  8. NORVASC [Concomitant]
     Dates: start: 20020717
  9. AMBIEN [Concomitant]
     Dates: start: 19970929
  10. RANITIDINE [Concomitant]
     Dates: start: 20020926
  11. CLONAZEPAM [Concomitant]
     Dates: start: 20021107
  12. DESIPRAMIDE HCL [Concomitant]
     Dates: start: 20050308
  13. GEODON [Concomitant]
  14. SEROQUEL [Suspect]
     Route: 048
     Dates: start: 20020926
  15. SEROQUEL [Suspect]
     Route: 048
     Dates: start: 20050308
  16. DEPAKOTE [Concomitant]
     Dates: start: 19971204
  17. TARKA [Concomitant]
     Dosage: 2-180 CR TAB
     Dates: start: 19971204
  18. EFFEXOR XR [Concomitant]
     Dates: start: 19980310
  19. ZONEGRAN [Concomitant]
     Dates: start: 20030910
  20. PROZAC [Concomitant]
     Dates: start: 19971204
  21. CARISOPRODOL [Concomitant]
     Dates: start: 19980430
  22. TOPAMAX [Concomitant]
     Dates: start: 20030910
  23. ALLI [Concomitant]
  24. SEROQUEL [Suspect]
     Route: 048
     Dates: start: 19980317
  25. SEROQUEL [Suspect]
     Route: 048
     Dates: start: 20030910
  26. ACETAMINOPHEN AND HYDROCODONE BITARTRATE [Concomitant]
     Dosage: 7.5-650 TAB
     Dates: start: 20050208

REACTIONS (2)
  - SLEEP APNOEA SYNDROME [None]
  - TYPE 2 DIABETES MELLITUS [None]
